FAERS Safety Report 12999849 (Version 2)
Quarter: 2016Q4

REPORT INFORMATION
  Report Type: Report from Study
  Country: JP (occurrence: JP)
  Receive Date: 20161205
  Receipt Date: 20161205
  Transmission Date: 20170207
  Serious: Yes (Death, Hospitalization)
  Sender: FDA-Public Use
  Company Number: JP-SA-2016SA220554

PATIENT
  Age: 59 Year
  Sex: Male

DRUGS (6)
  1. EVOLTRA [Suspect]
     Active Substance: CLOFARABINE
     Indication: ACUTE LYMPHOCYTIC LEUKAEMIA
     Route: 042
     Dates: start: 20151207, end: 20151211
  2. EVOLTRA [Suspect]
     Active Substance: CLOFARABINE
     Indication: ACUTE LYMPHOCYTIC LEUKAEMIA
     Route: 042
     Dates: start: 20160130, end: 20160203
  3. CYCLOPHOSPHAMIDE. [Concomitant]
     Active Substance: CYCLOPHOSPHAMIDE
     Route: 042
     Dates: start: 20160130, end: 20160203
  4. ETOPOSIDE. [Concomitant]
     Active Substance: ETOPOSIDE
     Route: 042
     Dates: start: 20160130, end: 20160203
  5. ETOPOSIDE. [Concomitant]
     Active Substance: ETOPOSIDE
     Route: 042
     Dates: start: 20151207, end: 20151211
  6. CYCLOPHOSPHAMIDE. [Concomitant]
     Active Substance: CYCLOPHOSPHAMIDE
     Route: 042
     Dates: start: 20151207, end: 20151211

REACTIONS (9)
  - Lung infection [Fatal]
  - Systemic inflammatory response syndrome [Fatal]
  - Febrile neutropenia [Fatal]
  - Blood bilirubin increased [Fatal]
  - Platelet count decreased [Not Recovered/Not Resolved]
  - Cystitis [Recovered/Resolved]
  - Anaemia [Not Recovered/Not Resolved]
  - Histiocytosis haematophagic [Fatal]
  - Blood creatinine increased [Fatal]

NARRATIVE: CASE EVENT DATE: 20151210
